FAERS Safety Report 16782728 (Version 2)
Quarter: 2020Q1

REPORT INFORMATION
  Report Type: Spontaneous
  Country: US (occurrence: US)
  Receive Date: 20190906
  Receipt Date: 20200323
  Transmission Date: 20200409
  Serious: No
  Sender: FDA-Public Use
  Company Number: US-SA-2019SA244196

PATIENT
  Sex: Male

DRUGS (1)
  1. DUPIXENT [Suspect]
     Active Substance: DUPILUMAB
     Indication: ECZEMA NUMMULAR
     Dosage: 300 MG, QOW
     Route: 058
     Dates: start: 20180503

REACTIONS (3)
  - Pain [Recovered/Resolved]
  - Interventional procedure [Unknown]
  - Plantar fasciitis [Unknown]
